FAERS Safety Report 4734423-8 (Version None)
Quarter: 2005Q3

REPORT INFORMATION
  Report Type: 
  Country: None (occurrence: None)
  Receive Date: 20050804
  Receipt Date: 20050725
  Transmission Date: 20060218
  Serious: Yes (Other)
  Sender: FDA-Public Use
  Company Number: JP-BRISTOL-MYERS SQUIBB COMPANY-13049291

PATIENT
  Age: 23 Year
  Sex: Female

DRUGS (2)
  1. AMPICILLIN [Suspect]
     Indication: JUVENILE ARTHRITIS
     Dosage: 7 DAYS INTERRUPTED, RECHALLENGE 100 MG 39 DAYS, 2ND RECHALLENGE 90 DAYS, 3RD RECHALLENGE 165 DAYS.
  2. PREDNISONE [Concomitant]
     Indication: JUVENILE ARTHRITIS
     Route: 048

REACTIONS (2)
  - EPSTEIN-BARR VIRUS INFECTION [None]
  - RASH MACULO-PAPULAR [None]
